FAERS Safety Report 10290619 (Version 1)
Quarter: 2014Q3

REPORT INFORMATION
  Report Type: Report from Study
  Country: DE (occurrence: DE)
  Receive Date: 20140710
  Receipt Date: 20140710
  Transmission Date: 20150326
  Serious: Yes (Life-Threatening, Hospitalization, Other)
  Sender: FDA-Public Use
  Company Number: DE-CELGENEUS-062-21880-14064582

PATIENT
  Age: 52 Year
  Sex: Male
  Weight: 84 kg

DRUGS (3)
  1. REVLIMID [Suspect]
     Active Substance: LENALIDOMIDE
     Dosage: MILLIGRAM
     Route: 048
     Dates: end: 20110704
  2. REVLIMID [Suspect]
     Active Substance: LENALIDOMIDE
     Route: 048
  3. REVLIMID [Suspect]
     Active Substance: LENALIDOMIDE
     Indication: PLASMA CELL MYELOMA
     Route: 048
     Dates: start: 20110630, end: 20110630

REACTIONS (3)
  - Graft versus host disease in liver [Recovered/Resolved]
  - Graft versus host disease in skin [Recovering/Resolving]
  - Infective exacerbation of chronic obstructive airways disease [Recovered/Resolved with Sequelae]

NARRATIVE: CASE EVENT DATE: 20110701
